FAERS Safety Report 4696353-X (Version None)
Quarter: 2005Q2

REPORT INFORMATION
  Report Type: 
  Country: None (occurrence: None)
  Receive Date: 20050620
  Receipt Date: 20050610
  Transmission Date: 20051028
  Serious: Yes (Hospitalization, Other)
  Sender: FDA-Public Use
  Company Number: KII-2005-0017031

PATIENT
  Age: 54 Year
  Sex: Female

DRUGS (7)
  1. MORPHINE SULFATE [Suspect]
     Indication: PAIN
     Dosage: ORAL
     Route: 048
  2. ANTIEPILEPTICS [Suspect]
     Indication: BACK PAIN
     Dosage: ORAL
     Route: 048
  3. FUROSEMIDE [Suspect]
     Dosage: ORAL
     Route: 048
  4. SSRI [Suspect]
     Indication: DEPRESSION
     Dosage: ORAL
     Route: 048
  5. ASPIRIN [Suspect]
  6. AMPHETAMINE SULFATE TAB [Suspect]
  7. TRICYCLIC ANTIDEPRESSANTS [Suspect]

REACTIONS (13)
  - BLOOD POTASSIUM DECREASED [None]
  - BLOOD POTASSIUM INCREASED [None]
  - BLOOD PRESSURE SYSTOLIC DECREASED [None]
  - CARDIAC FAILURE [None]
  - CONFUSIONAL STATE [None]
  - DEPRESSED LEVEL OF CONSCIOUSNESS [None]
  - DISORIENTATION [None]
  - DRUG SCREEN POSITIVE [None]
  - HYPERHIDROSIS [None]
  - INCOHERENT [None]
  - MUSCLE TWITCHING [None]
  - RENAL FAILURE ACUTE [None]
  - URINE ANALYSIS ABNORMAL [None]
